FAERS Safety Report 17893084 (Version 1)
Quarter: 2020Q2

REPORT INFORMATION
  Report Type: Spontaneous
  Country: US (occurrence: US)
  Receive Date: 20200614
  Receipt Date: 20200614
  Transmission Date: 20200714
  Serious: No
  Sender: FDA-Public Use
  Company Number: US-ASTRAZENECA-2020SE68388

PATIENT
  Age: 440 Month
  Sex: Female
  Weight: 81.6 kg

DRUGS (1)
  1. SYMBICORT [Suspect]
     Active Substance: BUDESONIDE\FORMOTEROL FUMARATE DIHYDRATE
     Indication: COUGH
     Dosage: 2 PUFFS,TWO TIMES A DAY
     Route: 055
     Dates: start: 202004

REACTIONS (2)
  - Cough [Not Recovered/Not Resolved]
  - Drug delivery system issue [Not Recovered/Not Resolved]

NARRATIVE: CASE EVENT DATE: 202005
